FAERS Safety Report 23476700 (Version 1)
Quarter: 2024Q1

REPORT INFORMATION
  Report Type: Spontaneous
  Country: JP (occurrence: JP)
  Receive Date: 20240204
  Receipt Date: 20240204
  Transmission Date: 20240409
  Serious: No
  Sender: FDA-Public Use
  Company Number: JP-TAKEDA-2023TJP005798

PATIENT
  Age: 7 Decade
  Sex: Male

DRUGS (1)
  1. CABOMETYX [Suspect]
     Active Substance: CABOZANTINIB S-MALATE
     Indication: Renal cancer
     Dosage: 20 MILLIGRAM, QOD
     Route: 048

REACTIONS (2)
  - Proteinuria [Unknown]
  - Inappropriate schedule of product administration [Unknown]
